FAERS Safety Report 24437726 (Version 2)
Quarter: 2025Q2

REPORT INFORMATION
  Report Type: Report from Study
  Country: BR (occurrence: BR)
  Receive Date: 20241015
  Receipt Date: 20250512
  Transmission Date: 20250717
  Serious: Yes (Death)
  Sender: NOVARTIS
  Company Number: BR-002147023-NVSC2024BR201288

PATIENT
  Sex: Female

DRUGS (1)
  1. RIBOCICLIB [Suspect]
     Active Substance: RIBOCICLIB
     Indication: Product used for unknown indication
     Route: 065

REACTIONS (6)
  - Fatigue [Fatal]
  - Pain in extremity [Fatal]
  - Fluid retention [Fatal]
  - Respiratory rate increased [Fatal]
  - Disease progression [Fatal]
  - Lung disorder [Fatal]
